FAERS Safety Report 5152990-X (Version None)
Quarter: 2006Q4

REPORT INFORMATION
  Report Type: 
  Country: None (occurrence: None)
  Receive Date: 20061117
  Receipt Date: 20061107
  Transmission Date: 20070319
  Serious: Yes (Other)
  Sender: FDA-Public Use
  Company Number: 2006UW23406

PATIENT
  Age: 20869 Day
  Sex: Female

DRUGS (8)
  1. ARIMIDEX [Suspect]
     Indication: BREAST CANCER
     Route: 048
  2. VITAMIN E [Concomitant]
  3. CELEBREX [Concomitant]
  4. EFFEXOR [Concomitant]
  5. ELAVIL [Concomitant]
  6. RESTORIL [Concomitant]
  7. CLONIDINE [Concomitant]
  8. FIORINAL [Concomitant]

REACTIONS (4)
  - DRUG INTERACTION [None]
  - HYPERHIDROSIS [None]
  - PHARMACEUTICAL PRODUCT COMPLAINT [None]
  - SKIN ODOUR ABNORMAL [None]
